FAERS Safety Report 17261617 (Version 1)
Quarter: 2020Q1

REPORT INFORMATION
  Report Type: Report from Study
  Country: ES (occurrence: ES)
  Receive Date: 20200113
  Receipt Date: 20200113
  Transmission Date: 20200409
  Serious: Yes (Hospitalization)
  Sender: FDA-Public Use
  Company Number: ES-TEVA-2020-ES-1166839

PATIENT
  Age: 89 Year
  Sex: Female

DRUGS (10)
  1. FUROSEMIDA 40 MG COMPRIMIDO [Suspect]
     Active Substance: FUROSEMIDE
     Dosage: 1-0-0 (40MG EVERY 24 HOURS)
     Route: 048
     Dates: start: 2012
  2. FLUOXETINA 20 MG [Suspect]
     Active Substance: FLUOXETINE HYDROCHLORIDE
     Indication: DEPRESSION
     Dosage: 1-1-0, THEN 1-1/2-0
     Route: 048
     Dates: start: 2009
  3. FLUOXETINA 20 MG [Suspect]
     Active Substance: FLUOXETINE HYDROCHLORIDE
     Dosage: 1-0-0 (20MG EVERY 24 HOURS)
     Route: 048
     Dates: start: 201908, end: 20190907
  4. OMEPRAZOL 20 MG [Concomitant]
     Active Substance: OMEPRAZOLE
     Route: 048
  5. PARACETAMOL 1GR [Concomitant]
     Route: 048
  6. DUPHALAC [Concomitant]
     Active Substance: LACTULOSE
     Route: 048
  7. SYMBICORT [Concomitant]
     Active Substance: BUDESONIDE\FORMOTEROL FUMARATE DIHYDRATE
     Route: 055
  8. MYCOSTATIN 100.000 UI/ML [Concomitant]
     Route: 048
  9. ORFIDAL 1 MG [Concomitant]
     Route: 048
  10. EUTIROX  75 MICROGRAMOS COMPRIMIDOS [Concomitant]
     Active Substance: LEVOTHYROXINE SODIUM
     Route: 048

REACTIONS (3)
  - Hyponatraemia [Recovering/Resolving]
  - Depressed level of consciousness [Recovered/Resolved]
  - Myoclonus [Recovered/Resolved]

NARRATIVE: CASE EVENT DATE: 20190906
